FAERS Safety Report 10285657 (Version 1)
Quarter: 2014Q3

REPORT INFORMATION
  Report Type: Spontaneous
  Country: US (occurrence: US)
  Receive Date: 20140709
  Receipt Date: 20140709
  Transmission Date: 20150326
  Serious: Yes (Death)
  Sender: FDA-Public Use
  Company Number: US-AMGEN-USASP2014050215

PATIENT
  Age: 44 Year
  Sex: Female

DRUGS (3)
  1. COUMADIN [Concomitant]
     Active Substance: WARFARIN SODIUM
  2. SENSIPAR [Suspect]
     Active Substance: CINACALCET HYDROCHLORIDE
     Indication: HYPERPARATHYROIDISM SECONDARY
     Dosage: 120 MG, QD
     Route: 065
  3. PHOSLO [Concomitant]
     Active Substance: CALCIUM ACETATE

REACTIONS (3)
  - Death [Fatal]
  - Hypertension [Unknown]
  - Anxiety [Unknown]
